FAERS Safety Report 19582024 (Version 1)
Quarter: 2021Q3

REPORT INFORMATION
  Report Type: Spontaneous
  Country: US (occurrence: US)
  Receive Date: 20210720
  Receipt Date: 20210720
  Transmission Date: 20211014
  Serious: No
  Sender: FDA-Public Use
  Company Number: None

PATIENT
  Age: 66 Year
  Sex: Male
  Weight: 95.4 kg

DRUGS (1)
  1. WEGOVY [Suspect]
     Active Substance: SEMAGLUTIDE
     Indication: OBESITY
     Dosage: ?          QUANTITY:4 INJECTION(S);OTHER FREQUENCY:ONE PER WEEK;?
     Route: 058
     Dates: start: 20210719

REACTIONS (4)
  - Incorrect dose administered [None]
  - Device malfunction [None]
  - Exposure via skin contact [None]
  - Accidental exposure to product [None]

NARRATIVE: CASE EVENT DATE: 20210719
